FAERS Safety Report 9459427 (Version 2)
Quarter: 2014Q2

REPORT INFORMATION
  Report Type: Report from Study
  Country: FR (occurrence: FR)
  Receive Date: 20130815
  Receipt Date: 20140515
  Transmission Date: 20141212
  Serious: Yes (Hospitalization)
  Sender: FDA-Public Use
  Company Number: FR-ALEXION PHARMACEUTICALS INC.-A201301834

PATIENT
  Sex: 0

DRUGS (16)
  1. ECULIZUMAB [Suspect]
     Indication: HAEMOLYTIC URAEMIC SYNDROME
     Dosage: 900 MG, Q2W
     Route: 042
     Dates: start: 20100331
  2. ECULIZUMAB [Suspect]
     Dosage: 1200 MG, Q2W
     Route: 042
     Dates: start: 20100407, end: 20110525
  3. TIORFAN [Concomitant]
     Indication: PRODUCT USED FOR UNKNOWN INDICATION
     Dosage: 100 MG, TID (MORNING, NOON, EVENING)
     Route: 048
     Dates: start: 20111001
  4. DUPHALAC [Concomitant]
     Indication: PRODUCT USED FOR UNKNOWN INDICATION
     Dosage: 10 G/15 ML, 2 BAGS, TID (MORNING)
     Route: 048
     Dates: start: 20111001
  5. IMOVANE [Concomitant]
     Indication: PRODUCT USED FOR UNKNOWN INDICATION
     Dosage: 7.5 MG, QD (BEDTIME)
     Route: 048
     Dates: start: 20111001
  6. TILDIEM [Concomitant]
     Indication: PRODUCT USED FOR UNKNOWN INDICATION
     Dosage: 300 MG, QD (MORNING)
     Route: 065
     Dates: start: 20110929
  7. KAYEXALATE [Concomitant]
     Indication: PRODUCT USED FOR UNKNOWN INDICATION
     Dosage: 1 SPOON, QD (NOON)
     Route: 048
     Dates: start: 20110929
  8. NEXIUM [Concomitant]
     Indication: PRODUCT USED FOR UNKNOWN INDICATION
     Dosage: 20 MG, QD (EVENIN)
     Route: 048
     Dates: start: 20110929
  9. PARACETAMOL [Concomitant]
     Indication: PRODUCT USED FOR UNKNOWN INDICATION
     Dosage: 1 G, QID
     Route: 042
     Dates: start: 20110929
  10. CONTRAMAL [Concomitant]
     Indication: PRODUCT USED FOR UNKNOWN INDICATION
     Dosage: 50 MG, QID (IF INSUFFICIENT PERFALGAN)
     Route: 042
     Dates: start: 20110929
  11. DEPAMIDE [Concomitant]
     Indication: PRODUCT USED FOR UNKNOWN INDICATION
     Dosage: 600 MG, QD (MORNING)
     Route: 048
     Dates: start: 20110929
  12. DEPAMIDE [Concomitant]
     Dosage: 300 MG, QD (NOON)
     Route: 048
     Dates: start: 20110929
  13. SECTRAL [Concomitant]
     Indication: PRODUCT USED FOR UNKNOWN INDICATION
     Dosage: 200 MG, QD (EVENING)
     Route: 048
     Dates: start: 20110929
  14. MICARDIS [Concomitant]
     Indication: PRODUCT USED FOR UNKNOWN INDICATION
     Dosage: 40 MG, QD (MORNING)
     Route: 048
     Dates: start: 20110929
  15. FOSRENOL [Concomitant]
     Indication: PRODUCT USED FOR UNKNOWN INDICATION
     Dosage: 750 MG, TID (MORNING, NOON, EVENING)
     Route: 048
     Dates: start: 20110929
  16. DOLIPRANE [Concomitant]
     Indication: PAIN
     Dosage: 1 G, QID
     Route: 048
     Dates: start: 20110929

REACTIONS (1)
  - Inflammation [Not Recovered/Not Resolved]
